FAERS Safety Report 14991136 (Version 1)
Quarter: 2018Q2

REPORT INFORMATION
  Report Type: Spontaneous
  Country: CN (occurrence: CN)
  Receive Date: 20180608
  Receipt Date: 20180608
  Transmission Date: 20180711
  Serious: Yes (Other)
  Sender: FDA-Public Use
  Company Number: CN-MYLANLABS-2018M1038773

PATIENT
  Age: 46 Year
  Sex: Female

DRUGS (3)
  1. OTHER THERAPEUTIC PRODUCTS [Suspect]
     Active Substance: UNSPECIFIED INGREDIENT
     Indication: PRODUCT USED FOR UNKNOWN INDICATION
     Dosage: 100 MG OF 2 ML:20 MG INJECTION; RECEIVED 100 ML OF THE SOLUTION
     Route: 041
  2. SODIUM CHLORIDE. [Concomitant]
     Active Substance: SODIUM CHLORIDE
     Indication: PRODUCT USED FOR UNKNOWN INDICATION
     Dosage: 500ML INJECTION; RECEIVED 100 ML OF THE SOLUTION
     Route: 041
  3. POTASSIUM CHLORIDE. [Suspect]
     Active Substance: POTASSIUM CHLORIDE
     Indication: PRODUCT USED FOR UNKNOWN INDICATION
     Dosage: 1.5 [UNIT NOT STATED] INJECTION; RECEIVED 100 ML OF THE SOLUTION
     Route: 041

REACTIONS (1)
  - Hypersensitivity [Recovered/Resolved]
